FAERS Safety Report 6719493-X (Version None)
Quarter: 2010Q2

REPORT INFORMATION
  Report Type: 
  Country: None (occurrence: None)
  Receive Date: 20100510
  Receipt Date: 20100510
  Transmission Date: 20101027
  Serious: Yes (Hospitalization, Other)
  Sender: FDA-Public Use
  Company Number: None

PATIENT
  Age: 38 Year
  Sex: Female
  Weight: 68.0396 kg

DRUGS (3)
  1. NASONEX [Suspect]
     Indication: DIZZINESS
     Dosage: 2 SPRAYS IN EACH NOSTRIL ONCE DAILY NASAL
     Route: 045
     Dates: start: 20080325, end: 20080517
  2. NASONEX [Suspect]
     Indication: MIDDLE EAR EFFUSION
     Dosage: 2 SPRAYS IN EACH NOSTRIL ONCE DAILY NASAL
     Route: 045
     Dates: start: 20080325, end: 20080517
  3. NASONEX [Suspect]
     Indication: MULTIPLE ALLERGIES
     Dosage: 2 SPRAYS IN EACH NOSTRIL ONCE DAILY NASAL
     Route: 045
     Dates: start: 20080325, end: 20080517

REACTIONS (14)
  - AGEUSIA [None]
  - ANXIETY [None]
  - BACK PAIN [None]
  - DYSGEUSIA [None]
  - FACIAL PAIN [None]
  - HEADACHE [None]
  - HEART RATE INCREASED [None]
  - HEART RATE IRREGULAR [None]
  - HYPOAESTHESIA [None]
  - INSOMNIA [None]
  - OROPHARYNGEAL PAIN [None]
  - PAIN IN EXTREMITY [None]
  - PANIC ATTACK [None]
  - RHINALGIA [None]
